FAERS Safety Report 15881665 (Version 6)
Quarter: 2020Q3

REPORT INFORMATION
  Report Type: Report from Study
  Country: BR (occurrence: BR)
  Receive Date: 20190128
  Receipt Date: 20200828
  Transmission Date: 20201102
  Serious: Yes (Other)
  Sender: FDA-Public Use
  Company Number: PHHY2019BR016498

PATIENT
  Age: 40 Year
  Sex: Male
  Weight: 98 kg

DRUGS (6)
  1. COSENTYX [Suspect]
     Active Substance: SECUKINUMAB
     Dosage: UNK
     Route: 065
     Dates: start: 20190304
  2. COSENTYX [Suspect]
     Active Substance: SECUKINUMAB
     Dosage: UNK UNK, QMO
     Route: 065
     Dates: start: 20190504
  3. COSENTYX [Suspect]
     Active Substance: SECUKINUMAB
     Dosage: 150 MG, UNKNOWN
     Route: 065
     Dates: start: 201812
  4. COSENTYX [Suspect]
     Active Substance: SECUKINUMAB
     Dosage: UNK UNK, QMO
     Route: 065
     Dates: start: 20190404
  5. COSENTYX [Suspect]
     Active Substance: SECUKINUMAB
     Indication: ANKYLOSING SPONDYLITIS
     Dosage: 150 MG, QW
     Route: 058
     Dates: start: 20181210
  6. COSENTYX [Suspect]
     Active Substance: SECUKINUMAB
     Dosage: 150 MG, QW
     Route: 058
     Dates: start: 20181217

REACTIONS (35)
  - Abdominal wall infection [Recovered/Resolved]
  - Rash [Unknown]
  - Pain [Recovering/Resolving]
  - Macule [Not Recovered/Not Resolved]
  - Diarrhoea [Recovered/Resolved]
  - Pyrexia [Unknown]
  - Gastrointestinal infection [Unknown]
  - Erythema [Recovered/Resolved]
  - Dermatitis [Unknown]
  - Respiratory tract inflammation [Recovering/Resolving]
  - Nasal inflammation [Recovering/Resolving]
  - Candida infection [Unknown]
  - Abdominal pain [Unknown]
  - Diarrhoea [Not Recovered/Not Resolved]
  - Dysphagia [Recovered/Resolved]
  - Drug ineffective [Unknown]
  - Skin mass [Recovering/Resolving]
  - External ear inflammation [Unknown]
  - Blood blister [Recovered/Resolved]
  - Gingival bleeding [Not Recovered/Not Resolved]
  - Dyspnoea [Recovered/Resolved]
  - Pharyngeal swelling [Recovered/Resolved]
  - Oral infection [Recovered/Resolved]
  - Erythema [Recovered/Resolved]
  - Bone pain [Unknown]
  - Arthralgia [Unknown]
  - Hypersensitivity [Recovering/Resolving]
  - Pyrexia [Recovered/Resolved]
  - Respiratory tract infection [Recovered/Resolved]
  - Dysphonia [Not Recovered/Not Resolved]
  - Neck mass [Recovered/Resolved]
  - Blister [Unknown]
  - Blood blister [Unknown]
  - Pharyngeal inflammation [Recovering/Resolving]
  - Product administration error [Unknown]

NARRATIVE: CASE EVENT DATE: 201812
